FAERS Safety Report 11090528 (Version 1)
Quarter: 2015Q2

REPORT INFORMATION
  Report Type: Spontaneous
  Country: US (occurrence: None)
  Receive Date: 20150504
  Receipt Date: 20150504
  Transmission Date: 20150821
  Serious: Yes (Disabling)
  Sender: FDA-Public Use
  Company Number: None

PATIENT
  Age: 35 Year
  Sex: Female
  Weight: 88 kg

DRUGS (13)
  1. HYDROCORTISONE (CORTEF) [Concomitant]
  2. FLUOXETINE [Concomitant]
     Active Substance: FLUOXETINE\FLUOXETINE HYDROCHLORIDE
  3. VISTARIL [Concomitant]
     Active Substance: HYDROXYZINE PAMOATE
  4. NORETHINDRONE-E [Concomitant]
  5. FORTEO [Suspect]
     Active Substance: TERIPARATIDE
     Indication: OSTEOPOROSIS
     Dosage: INJECTED SUBCUTANEOUSLY
     Route: 058
     Dates: start: 20150330, end: 20150429
  6. HYDROXYZINE PAMOATE. [Concomitant]
     Active Substance: HYDROXYZINE PAMOATE
  7. ALEVE [Concomitant]
     Active Substance: NAPROXEN SODIUM
  8. LEVOTHYROXINE [Concomitant]
     Active Substance: LEVOTHYROXINE
  9. GABAPENTIN (NEURONTIN) [Concomitant]
  10. ESTRADIOL-IRON (MICROGESTIN FE) [Concomitant]
  11. NYSTATIN (NYSTOP) [Concomitant]
  12. LEVETIRACETAM (KEPPRA) [Concomitant]
  13. LIQUID REVIVA HIGH POTENCY MULTIVITAMIN [Concomitant]

REACTIONS (2)
  - Herpes zoster [None]
  - Injection site reaction [None]

NARRATIVE: CASE EVENT DATE: 20150429
